FAERS Safety Report 16368398 (Version 1)
Quarter: 2019Q2

REPORT INFORMATION
  Report Type: Spontaneous
  Country: TH (occurrence: TH)
  Receive Date: 20190529
  Receipt Date: 20190529
  Transmission Date: 20190711
  Serious: Yes (Disabling, Other)
  Sender: FDA-Public Use
  Company Number: TH-APOPHARMA USA, INC.-2019AP015253

PATIENT
  Age: 4 Year
  Sex: Female
  Weight: 15.2 kg

DRUGS (2)
  1. ALKERAN [Suspect]
     Active Substance: MELPHALAN
     Indication: RETINOBLASTOMA
     Dosage: 5 MG, Q.M.T.
     Route: 013
     Dates: start: 20170524, end: 20170621
  2. ALKERAN [Suspect]
     Active Substance: MELPHALAN
     Dosage: 5 MG, Q.M.T.
     Route: 013
     Dates: start: 20170718, end: 20170718

REACTIONS (2)
  - Arterial occlusive disease [Recovered/Resolved with Sequelae]
  - Horner^s syndrome [Recovered/Resolved with Sequelae]

NARRATIVE: CASE EVENT DATE: 20170718
